FAERS Safety Report 17104061 (Version 5)
Quarter: 2020Q2

REPORT INFORMATION
  Report Type: Spontaneous
  Country: PT (occurrence: PT)
  Receive Date: 20191203
  Receipt Date: 20200406
  Transmission Date: 20200713
  Serious: Yes (Death, Life-Threatening, Hospitalization, Other)
  Sender: FDA-Public Use
  Company Number: PT-AUROBINDO-AUR-APL-2019-076979

PATIENT
  Age: 70 Year
  Sex: Male

DRUGS (4)
  1. CEFTRIAXONE. [Suspect]
     Active Substance: CEFTRIAXONE
     Indication: SEPTIC SHOCK
     Dosage: UNK
     Route: 065
  2. LINEZOLID. [Suspect]
     Active Substance: LINEZOLID
     Indication: ENDOCARDITIS
     Dosage: UNK
     Route: 065
  3. ALLOPURINOL. [Suspect]
     Active Substance: ALLOPURINOL
     Indication: PRODUCT USED FOR UNKNOWN INDICATION
     Dosage: UNK
     Route: 065
  4. GENTAMICIN. [Suspect]
     Active Substance: GENTAMICIN
     Indication: ENDOCARDITIS
     Dosage: UNK
     Route: 065

REACTIONS (13)
  - Septic shock [Unknown]
  - Chronic kidney disease [Unknown]
  - Anaemia [Unknown]
  - Cyanosis [Unknown]
  - Ischaemia [Unknown]
  - Rhabdomyolysis [Unknown]
  - Stevens-Johnson syndrome [Fatal]
  - Skin lesion [Unknown]
  - Necrosis [Unknown]
  - Drug ineffective [Fatal]
  - Enterococcal infection [Unknown]
  - Cardiac arrest [Unknown]
  - Thrombocytopenia [Unknown]
